FAERS Safety Report 25802570 (Version 1)
Quarter: 2025Q3

REPORT INFORMATION
  Report Type: Spontaneous
  Country: US (occurrence: None)
  Receive Date: 20250914
  Receipt Date: 20250914
  Transmission Date: 20251021
  Serious: Yes (Other)
  Sender: FDA-CTU
  Company Number: None

PATIENT
  Age: 9 Year
  Sex: Male
  Weight: 27.9 kg

DRUGS (4)
  1. MONTELUKAST SODIUM [Suspect]
     Active Substance: MONTELUKAST SODIUM
     Indication: Multiple allergies
     Route: 048
     Dates: start: 20250909, end: 20250913
  2. MONTELUKAST SODIUM [Concomitant]
     Active Substance: MONTELUKAST SODIUM
  3. Hiya multivitamin [Concomitant]
  4. Zyretc 10 mg daily [Concomitant]

REACTIONS (4)
  - Mood altered [None]
  - Aggression [None]
  - Hostility [None]
  - Irritability [None]

NARRATIVE: CASE EVENT DATE: 20250913
